FAERS Safety Report 16017572 (Version 1)
Quarter: 2019Q1

REPORT INFORMATION
  Report Type: Spontaneous
  Country: US (occurrence: US)
  Receive Date: 20190228
  Receipt Date: 20190228
  Transmission Date: 20190418
  Serious: No
  Sender: FDA-Public Use
  Company Number: US-009507513-1902USA002513

PATIENT
  Sex: Female

DRUGS (7)
  1. NASONEX [Suspect]
     Active Substance: MOMETASONE FUROATE
     Dosage: 2 SPRAYS PER USE
  2. ASTELIN (AZELASTINE HYDROCHLORIDE) [Suspect]
     Active Substance: AZELASTINE HYDROCHLORIDE
     Dosage: 2 SPRAYS PER USE
     Route: 045
  3. QVAR [Suspect]
     Active Substance: BECLOMETHASONE DIPROPIONATE
     Dosage: 40 MCG EVERY AM WITH PEAK FLOWS GREATER THAN 330 MCG OR 80 MCG EVERY AM WITH PEAK FLOWS LESS THAN 33
     Dates: start: 20101221
  4. FLECAINIDE [Concomitant]
     Active Substance: FLECAINIDE
  5. FOSAMAX [Concomitant]
     Active Substance: ALENDRONATE SODIUM
  6. WARFARIN [Concomitant]
     Active Substance: WARFARIN
  7. ZYRTEC [Concomitant]
     Active Substance: CETIRIZINE HYDROCHLORIDE

REACTIONS (3)
  - Feeling abnormal [Unknown]
  - Road traffic accident [Recovered/Resolved]
  - Overdose [Unknown]

NARRATIVE: CASE EVENT DATE: 20101221
